FAERS Safety Report 16334898 (Version 1)
Quarter: 2019Q2

REPORT INFORMATION
  Report Type: Spontaneous
  Country: IL (occurrence: IL)
  Receive Date: 20190520
  Receipt Date: 20190520
  Transmission Date: 20190711
  Serious: Yes (Other)
  Sender: FDA-Public Use
  Company Number: PHHY2019IL113551

PATIENT
  Age: 8 Year
  Sex: Male
  Weight: 45 kg

DRUGS (1)
  1. ILARIS [Suspect]
     Active Substance: CANAKINUMAB
     Indication: STILL^S DISEASE
     Dosage: 3 MG/KG, Q4W
     Route: 065
     Dates: start: 201807

REACTIONS (2)
  - Prescribed underdose [Unknown]
  - Juvenile idiopathic arthritis [Unknown]
